FAERS Safety Report 8985900 (Version 1)
Quarter: 2012Q4

REPORT INFORMATION
  Report Type: 
  Country: US (occurrence: US)
  Receive Date: 20121226
  Receipt Date: 20121226
  Transmission Date: 20130627
  Serious: Yes (Life-Threatening, Hospitalization, Other)
  Sender: FDA-Public Use
  Company Number: US-ELI_LILLY_AND_COMPANY-US201107000300

PATIENT
  Sex: Male

DRUGS (5)
  1. BYETTA [Suspect]
  2. METFORMIN [Concomitant]
  3. AVANDIA [Concomitant]
  4. NIFEDIPINE [Concomitant]
  5. ENALAPRIL [Concomitant]

REACTIONS (6)
  - Respiratory failure [Unknown]
  - Renal failure [Unknown]
  - Pancreatitis necrotising [Recovering/Resolving]
  - Pancreatic pseudocyst [Unknown]
  - Deep vein thrombosis [Unknown]
  - Pancreatitis acute [Unknown]
